FAERS Safety Report 7154825-2 (Version None)
Quarter: 2010Q4

REPORT INFORMATION
  Report Type: 
  Country: None (occurrence: None)
  Receive Date: 20101214
  Receipt Date: 20091110
  Transmission Date: 20110411
  Serious: No
  Sender: FDA-Public Use
  Company Number: US-AMGEN-TCS369133

PATIENT

DRUGS (2)
  1. ENBREL [Suspect]
     Indication: RHEUMATOID ARTHRITIS
     Dosage: 25 MG, 2 TIMES/WK
     Route: 058
     Dates: end: 20041101
  2. LEFLUNOMIDE [Concomitant]
     Dosage: UNK UNK, UNK

REACTIONS (2)
  - EYE SWELLING [None]
  - RHEUMATOID FACTOR INCREASED [None]
